FAERS Safety Report 5167275-5 (Version None)
Quarter: 2006Q4

REPORT INFORMATION
  Report Type: 
  Country: None (occurrence: None)
  Receive Date: 20061124
  Receipt Date: 20061120
  Transmission Date: 20070319
  Serious: Yes (Other)
  Sender: FDA-Public Use
  Company Number: 2006144213

PATIENT
  Age: 89 Year
  Sex: Male
  Weight: 74.8435 kg

DRUGS (2)
  1. ZOLOFT [Suspect]
     Indication: EMOTIONAL DISORDER
     Dosage: 50 MG (50 MG, QD: EVERYDAY)
     Dates: start: 20060901
  2. AGGRENOX [Concomitant]

REACTIONS (4)
  - BACK PAIN [None]
  - CONTUSION [None]
  - HAEMORRHAGE [None]
  - PLATELET COUNT INCREASED [None]
